FAERS Safety Report 5982611-5 (Version None)
Quarter: 2008Q4

REPORT INFORMATION
  Report Type: 
  Country: None (occurrence: None)
  Receive Date: 20081208
  Receipt Date: 20081204
  Transmission Date: 20090506
  Serious: Yes (Life-Threatening, Hospitalization, Disabling)
  Sender: FDA-Public Use
  Company Number: PHHY2008TH29658

PATIENT
  Age: 47 Year
  Sex: Male
  Weight: 52.5 kg

DRUGS (4)
  1. GLEEVEC [Suspect]
     Indication: CHRONIC MYELOID LEUKAEMIA
     Dosage: 400 MG DAILY
     Route: 048
     Dates: end: 20081101
  2. ATARAX [Concomitant]
     Indication: RASH
     Dosage: 1 X 3
  3. NORGESIC                                /CAN/ [Concomitant]
     Indication: MYALGIA
     Dosage: 1 X 3
  4. MULTI-VITAMINS [Concomitant]
     Dosage: 1X 2

REACTIONS (11)
  - ATAXIA [None]
  - BLAST CELLS PRESENT [None]
  - BRAIN OPERATION [None]
  - CENTRAL NERVOUS SYSTEM LESION [None]
  - CEREBROVASCULAR ACCIDENT [None]
  - HEADACHE [None]
  - MUSCULOSKELETAL STIFFNESS [None]
  - RADIOTHERAPY [None]
  - SOMNOLENCE [None]
  - SUBDURAL HAEMATOMA [None]
  - VISION BLURRED [None]
